FAERS Safety Report 7148137-0 (Version None)
Quarter: 2010Q4

REPORT INFORMATION
  Report Type: 
  Country: None (occurrence: None)
  Receive Date: 20101209
  Receipt Date: 20101110
  Transmission Date: 20110411
  Serious: No
  Sender: FDA-Public Use
  Company Number: US-PFIZER INC-US-WYE-H18108010

PATIENT
  Age: 39 Year
  Sex: Female
  Weight: 81.72 kg

DRUGS (3)
  1. ADVIL COLD AND SINUS [Suspect]
     Indication: NASOPHARYNGITIS
     Dosage: 1 DF, EVERY FOUR TO SIX HOURS
     Route: 048
     Dates: start: 20101004
  2. ADVIL COLD AND SINUS [Suspect]
     Indication: SINUS CONGESTION
  3. LEVOTHYROXINE [Concomitant]
     Dosage: DAILY

REACTIONS (1)
  - DRUG INEFFECTIVE [None]
